FAERS Safety Report 21158326 (Version 6)
Quarter: 2023Q1

REPORT INFORMATION
  Report Type: Report from Study
  Country: JP (occurrence: JP)
  Receive Date: 20220801
  Receipt Date: 20230222
  Transmission Date: 20230418
  Serious: Yes (Hospitalization)
  Sender: FDA-Public Use
  Company Number: JP-ABBVIE-22K-087-4480898-00

PATIENT
  Age: 73 Year
  Sex: Male

DRUGS (12)
  1. VENETOCLAX [Suspect]
     Active Substance: VENETOCLAX
     Indication: Myelodysplastic syndrome
     Dosage: DAYS 1 - 14 OF EACH 28-DAY CYCLE
     Route: 048
     Dates: start: 20220516, end: 20220710
  2. LANSOPRAZOLE [Concomitant]
     Active Substance: LANSOPRAZOLE
     Indication: Gastritis prophylaxis
     Route: 048
     Dates: start: 20220515, end: 20221031
  3. SENNOSIDES [Concomitant]
     Active Substance: SENNOSIDES
     Indication: Constipation
     Dosage: TIME INTERVAL: AS NECESSARY
     Route: 048
     Dates: start: 20220518, end: 20221031
  4. RIDERON-V [Concomitant]
     Indication: Injection site reaction
     Dosage: TIME INTERVAL: AS NECESSARY: 1 APPLICATOR
     Route: 062
     Dates: start: 20220519, end: 20221031
  5. DEXCHLORPHENIRAMINE MALEATE [Concomitant]
     Active Substance: DEXCHLORPHENIRAMINE MALEATE
     Indication: Premedication
     Dosage: TIME INTERVAL: AS NECESSARY
     Route: 042
     Dates: start: 20220519, end: 20221031
  6. SODIUM GUALENATE MONOHYDRATE [Concomitant]
     Active Substance: SODIUM GUALENATE MONOHYDRATE
     Indication: Infection prophylaxis
     Dosage: TIME INTERVAL: AS NECESSARY: 1 APPLICATION
     Route: 049
     Dates: start: 20220528, end: 20221031
  7. DEQUALINIUM CHLORIDE [Concomitant]
     Active Substance: DEQUALINIUM CHLORIDE
     Indication: Cough
     Dosage: TIME INTERVAL: AS NECESSARY
     Route: 048
     Dates: start: 20220620, end: 20221031
  8. MAGNESIUM OXIDE [Concomitant]
     Active Substance: MAGNESIUM OXIDE
     Indication: Constipation
     Dosage: TIME INTERVAL: 0.33333333 DAYS
     Route: 048
     Dates: start: 20220720, end: 20221031
  9. SODIUM BICARBONATE\SODIUM PHOSPHATE, MONOBASIC [Concomitant]
     Active Substance: SODIUM BICARBONATE\SODIUM PHOSPHATE, MONOBASIC
     Indication: Haemorrhoids
     Dosage: TIME INTERVAL: AS NECESSARY: 1 APPLICATION
     Route: 054
     Dates: start: 20220720, end: 20221031
  10. LIDOCAINE\TRIBENOSIDE [Concomitant]
     Active Substance: LIDOCAINE\TRIBENOSIDE
     Indication: Haemorrhoids
     Dosage: TIME INTERVAL: AS NECESSARY: 1 APPLICATION
     Route: 054
     Dates: start: 20220721, end: 20221031
  11. LEVOFLOXACIN [Concomitant]
     Active Substance: LEVOFLOXACIN
     Indication: Infection prophylaxis
     Route: 048
     Dates: start: 20220721, end: 20220725
  12. AZACITIDINE [Suspect]
     Active Substance: AZACITIDINE
     Indication: Myelodysplastic syndrome
     Dosage: 7 DAYS WITHIN THE FIRST 9 CALENDAR DAYS OF EACH 28-DAY CYCLE
     Route: 058
     Dates: start: 20220516, end: 20220705

REACTIONS (2)
  - Pneumonia bacterial [Recovered/Resolved]
  - Febrile neutropenia [Recovered/Resolved]

NARRATIVE: CASE EVENT DATE: 20220725
